FAERS Safety Report 4559125-2 (Version None)
Quarter: 2005Q1

REPORT INFORMATION
  Report Type: 
  Country: None (occurrence: None)
  Receive Date: 20050119
  Receipt Date: 20050107
  Transmission Date: 20050727
  Serious: Yes (Hospitalization)
  Sender: FDA-Public Use
  Company Number: 2004AL001522

PATIENT
  Age: 27 Year
  Sex: Male

DRUGS (3)
  1. KADIAN [Suspect]
     Indication: TOOTHACHE
     Dosage: 20 MG; X1; PO
     Route: 048
     Dates: start: 20041029, end: 20041029
  2. BUPROPION HYDROCHLORIDE [Suspect]
     Indication: SMOKING CESSATION THERAPY
     Dosage: PO
     Route: 048
     Dates: start: 20040929, end: 20041029
  3. EFFERALGAN [Concomitant]

REACTIONS (2)
  - ARTERIOSPASM CORONARY [None]
  - SELF-MEDICATION [None]
